FAERS Safety Report 5279691-1 (Version None)
Quarter: 2007Q1

REPORT INFORMATION
  Report Type: 
  Country: None (occurrence: None)
  Receive Date: 20070323
  Receipt Date: 20070307
  Transmission Date: 20070707
  Serious: Yes (Other)
  Sender: FDA-Public Use
  Company Number: 8022491

PATIENT
  Age: 37 Year
  Sex: Female

DRUGS (5)
  1. KEPPRA [Suspect]
     Indication: EPILEPSY
     Dosage: 1750 MG/D PO
     Route: 048
     Dates: end: 20070101
  2. KEPPRA [Suspect]
     Indication: EPILEPSY
     Dosage: 2000 MG/D PO
     Route: 048
     Dates: start: 20070101
  3. PHENOBARBITAL TAB [Concomitant]
  4. PRENATAL VITAMINS [Concomitant]
  5. FOLIC ACID [Concomitant]

REACTIONS (5)
  - BIOPSY CHORIONIC VILLOUS ABNORMAL [None]
  - DRUG EXPOSURE DURING PREGNANCY [None]
  - FOETAL DISORDER [None]
  - TRISOMY 18 [None]
  - TWIN PREGNANCY [None]
